FAERS Safety Report 6212082-5 (Version None)
Quarter: 2009Q2

REPORT INFORMATION
  Report Type: 
  Country: None (occurrence: None)
  Receive Date: 20090602
  Receipt Date: 20090521
  Transmission Date: 20091009
  Serious: Yes (Death, Other)
  Sender: FDA-Public Use
  Company Number: US-TYCO HEALTHCARE/MALLINCKRODT-T200901119

PATIENT
  Sex: Female

DRUGS (10)
  1. OPTIMARK [Suspect]
     Indication: NUCLEAR MAGNETIC RESONANCE IMAGING BRAIN
     Dosage: UNK
     Route: 042
     Dates: start: 20060228, end: 20060228
  2. OPTIMARK [Suspect]
     Indication: NUCLEAR MAGNETIC RESONANCE IMAGING
     Dosage: UNK
     Route: 042
     Dates: start: 20060315, end: 20060315
  3. PREDNISONE [Concomitant]
     Dosage: 7.5 MG, QD
  4. SYNTHROID [Concomitant]
     Dosage: 25 UG, QD
  5. PRILOSEC [Concomitant]
     Dosage: 40 MG, QD
  6. NEPHROCAPS [Concomitant]
     Dosage: 1 DAILY
  7. DILANTIN [Concomitant]
     Dosage: 600 MG, BID
  8. COUMADIN [Concomitant]
     Dosage: 3 MG, H.S.
  9. CARDIZEM [Concomitant]
     Dosage: 120 MG, QD
  10. SENSIPAR [Concomitant]

REACTIONS (5)
  - KLEBSIELLA SEPSIS [None]
  - NEPHROGENIC SYSTEMIC FIBROSIS [None]
  - PNEUMONIA [None]
  - PULMONARY ALVEOLAR HAEMORRHAGE [None]
  - SYSTEMIC LUPUS ERYTHEMATOSUS [None]
